FAERS Safety Report 9216199 (Version 2)
Quarter: 2013Q2

REPORT INFORMATION
  Report Type: Spontaneous
  Country: AU (occurrence: None)
  Receive Date: 20130403
  Receipt Date: 20130513
  Transmission Date: 20140414
  Serious: Yes (Hospitalization)
  Sender: FDA-Public Use
  Company Number: ABR_00888_2013

PATIENT
  Age: 73 Year
  Sex: Male

DRUGS (4)
  1. NITROLINGUAL [Suspect]
     Indication: ANGINA PECTORIS
     Dosage: (0.4  MG  SUBLINGUAL)?(03/12/2013  TO  UNKNOWN)
     Route: 060
     Dates: start: 20130312
  2. UNSPECIFIED BLOOD PRESSURE  MEDICATIONS [Concomitant]
  3. UNSPECIFIED  HEART  MEDICATIONS [Concomitant]
  4. UNSPECIFIED  BLOOD  THINNING  TABLETS [Concomitant]

REACTIONS (3)
  - Drug ineffective [None]
  - Myocardial infarction [None]
  - Product quality issue [None]
